FAERS Safety Report 26112051 (Version 1)
Quarter: 2025Q4

REPORT INFORMATION
  Report Type: Spontaneous
  Country: None (occurrence: US)
  Receive Date: 20251202
  Receipt Date: 20251202
  Transmission Date: 20260118
  Serious: No
  Sender: Otter
  Company Number: US-OTTER-US-2025AST000277

PATIENT
  Sex: Female

DRUGS (2)
  1. OTREXUP [Suspect]
     Active Substance: METHOTREXATE
     Indication: Rheumatoid arthritis
     Dosage: 25 MILLIGRAM, WEEKLY
     Route: 058
     Dates: start: 202103
  2. OTREXUP [Suspect]
     Active Substance: METHOTREXATE
     Dosage: 0.4 MILLIGRAM, WEEKLY
     Route: 058
     Dates: start: 202103

REACTIONS (3)
  - Device failure [Unknown]
  - Product quality issue [Unknown]
  - Product dose omission issue [Unknown]

NARRATIVE: CASE EVENT DATE: 20250624
